FAERS Safety Report 7148896-7 (Version None)
Quarter: 2010Q4

REPORT INFORMATION
  Report Type: 
  Country: None (occurrence: None)
  Receive Date: 20101126
  Receipt Date: 20101121
  Transmission Date: 20110411
  Serious: Yes (Death, Hospitalization, Other)
  Sender: FDA-Public Use
  Company Number: 2009AC000447

PATIENT
  Age: 76 Year
  Sex: Female

DRUGS (46)
  1. DIGOXIN [Suspect]
     Indication: ARRHYTHMIA
     Dosage: 0.5 MG; QOD; IV
     Route: 042
     Dates: start: 20060312, end: 20060314
  2. DIGOXIN [Suspect]
     Dosage: 0.125 MG; QD; PO
     Route: 048
     Dates: start: 20060315, end: 20060325
  3. DIGOXIN [Suspect]
     Dosage: 0.125 MG; QOD; PO
     Route: 048
     Dates: start: 20070721, end: 20070806
  4. DIGOXIN [Suspect]
     Dosage: 0.25 MG; TIW; PO
     Route: 048
     Dates: start: 20070807, end: 20070901
  5. DIGOXIN [Suspect]
     Dosage: 0.125 MG; QOD; PO
     Route: 048
     Dates: start: 20070924, end: 20071101
  6. DIGOXIN [Suspect]
     Dosage: 0.125 MG; TIW; PO
     Route: 048
     Dates: start: 20071101, end: 20071203
  7. POTASSIUM [Concomitant]
  8. FUROSEMIDE [Concomitant]
  9. METOPROLOL TARTRATE [Concomitant]
  10. CLONIDINE [Concomitant]
  11. CARDIZEM [Concomitant]
  12. EPOGEN [Concomitant]
  13. LABETALOL HCL [Concomitant]
  14. FERRLECIT [Concomitant]
  15. INSPRA [Concomitant]
  16. LISINOPRIL [Concomitant]
  17. LOPRESSOR [Concomitant]
  18. REGLAN [Concomitant]
  19. RENAGEL [Concomitant]
  20. ASPIRIN [Concomitant]
  21. IRON [Concomitant]
  22. VANCOMYCIN [Concomitant]
  23. SNYTHROID [Concomitant]
  24. ALBUMIN (HUMAN) [Concomitant]
  25. NITROCLYCERINE [Concomitant]
  26. PROCRIT [Concomitant]
  27. PHOSLO [Concomitant]
  28. PRONESTYL [Concomitant]
  29. DIOVAN [Concomitant]
  30. RYTHMOL [Concomitant]
  31. DULCOLAX [Concomitant]
  32. XOPENEX [Concomitant]
  33. ATROVENT [Concomitant]
  34. FORADIL [Concomitant]
  35. DARVOCET [Concomitant]
  36. ACETAMINOPHEN [Concomitant]
  37. AMIODARONE [Concomitant]
  38. PREVACID [Concomitant]
  39. MAGNESIUM [Concomitant]
  40. VERAPAMIL [Concomitant]
  41. HEPARIN [Concomitant]
  42. DEXFOL [Concomitant]
  43. PROCARDIA [Concomitant]
  44. FLAGYL [Concomitant]
  45. PNEUMOTUSSIN [Concomitant]
  46. LEVAQUIN [Concomitant]

REACTIONS (61)
  - ABDOMINAL PAIN [None]
  - ACTIVITIES OF DAILY LIVING IMPAIRED [None]
  - ACUTE MYOCARDIAL INFARCTION [None]
  - ANHEDONIA [None]
  - ANXIETY [None]
  - AORTIC ANEURYSM [None]
  - AORTIC DILATATION [None]
  - ASTHENIA [None]
  - ATRIAL FIBRILLATION [None]
  - BACK PAIN [None]
  - BACTERIAL TEST POSITIVE [None]
  - BRADYCARDIA [None]
  - CARDIAC FAILURE CONGESTIVE [None]
  - CARDIOACTIVE DRUG LEVEL INCREASED [None]
  - CHEST DISCOMFORT [None]
  - CHILLS [None]
  - CLOSTRIDIAL INFECTION [None]
  - CLOSTRIDIUM DIFFICILE COLITIS [None]
  - COELIAC ARTERY OCCLUSION [None]
  - COLITIS ISCHAEMIC [None]
  - COUGH [None]
  - DECUBITUS ULCER [None]
  - DEEP VEIN THROMBOSIS [None]
  - DEFORMITY [None]
  - DEHYDRATION [None]
  - DISEASE RECURRENCE [None]
  - DRUG INTOLERANCE [None]
  - DYSPHAGIA [None]
  - DYSURIA [None]
  - ECONOMIC PROBLEM [None]
  - GASTROINTESTINAL HAEMORRHAGE [None]
  - HAEMODIALYSIS [None]
  - HYPERHIDROSIS [None]
  - HYPERTENSIVE CRISIS [None]
  - HYPOKALAEMIA [None]
  - HYPOTHYROIDISM [None]
  - HYPOXIA [None]
  - INJURY [None]
  - LOSS OF EMPLOYMENT [None]
  - MALNUTRITION [None]
  - MESENTERIC OCCLUSION [None]
  - NAUSEA [None]
  - PAIN [None]
  - PARTNER STRESS [None]
  - PNEUMONIA [None]
  - PULMONARY OEDEMA [None]
  - PYREXIA [None]
  - REFUSAL OF TREATMENT BY PATIENT [None]
  - RENAL FAILURE ACUTE [None]
  - RENAL FAILURE CHRONIC [None]
  - RESPIRATORY DISTRESS [None]
  - SEPSIS [None]
  - SMALL INTESTINAL OBSTRUCTION [None]
  - SOCIAL PROBLEM [None]
  - SPEECH DISORDER [None]
  - SUPRAVENTRICULAR TACHYCARDIA [None]
  - THERAPEUTIC AGENT TOXICITY [None]
  - TRICHOMONIASIS [None]
  - URINARY TRACT INFECTION [None]
  - VOMITING [None]
  - WEIGHT INCREASED [None]
